FAERS Safety Report 13795916 (Version 3)
Quarter: 2018Q1

REPORT INFORMATION
  Report Type: Spontaneous
  Country: GR (occurrence: GR)
  Receive Date: 20170726
  Receipt Date: 20180316
  Transmission Date: 20180508
  Serious: Yes (Hospitalization, Other)
  Sender: FDA-Public Use
  Company Number: PHHY2017GR108138

PATIENT
  Age: 44 Year
  Sex: Female

DRUGS (2)
  1. COSENTYX [Suspect]
     Active Substance: SECUKINUMAB
     Indication: PSORIATIC ARTHROPATHY
     Dosage: 300 MG, QMO
     Route: 058
  2. LEFLUNOMIDE. [Concomitant]
     Active Substance: LEFLUNOMIDE
     Indication: PRODUCT USED FOR UNKNOWN INDICATION
     Dosage: UNK
     Route: 048
     Dates: start: 2016

REACTIONS (14)
  - Inflammatory bowel disease [Recovering/Resolving]
  - Pyrexia [Not Recovered/Not Resolved]
  - Enteritis [Unknown]
  - Diarrhoea [Not Recovered/Not Resolved]
  - Gastritis erosive [Unknown]
  - Red blood cell sedimentation rate increased [Recovering/Resolving]
  - Arthritis [Recovered/Resolved]
  - Colitis [Unknown]
  - Ileal stenosis [Not Recovered/Not Resolved]
  - Cryptitis [Unknown]
  - Anaemia [Not Recovered/Not Resolved]
  - Amino acid level increased [Not Recovered/Not Resolved]
  - Crohn^s disease [Recovering/Resolving]
  - C-reactive protein increased [Recovering/Resolving]
